FAERS Safety Report 18275477 (Version 1)
Quarter: 2020Q3

REPORT INFORMATION
  Report Type: Other
  Country: US (occurrence: US)
  Receive Date: 20200916
  Receipt Date: 20200916
  Transmission Date: 20201103
  Serious: No
  Sender: FDA-Public Use
  Company Number: US-LEADIANT BIOSCIENCES INC-2020STPI000290

PATIENT
  Sex: Female

DRUGS (4)
  1. VENLAFAXINE [Concomitant]
     Active Substance: VENLAFAXINE HYDROCHLORIDE
  2. ALPRAZOLAM. [Concomitant]
     Active Substance: ALPRAZOLAM
  3. GABAPENTIN. [Concomitant]
     Active Substance: GABAPENTIN
  4. MATULANE [Suspect]
     Active Substance: PROCARBAZINE HYDROCHLORIDE
     Indication: BRAIN NEOPLASM MALIGNANT
     Dosage: 50 MILLIGRAM, 3 CAPSULES ONCE DAILY ON DAYS 8 TO 21 OF EVERY 56 DAY CYCLE
     Dates: start: 20200317

REACTIONS (3)
  - Decreased appetite [Not Recovered/Not Resolved]
  - Nausea [Not Recovered/Not Resolved]
  - Diarrhoea [Not Recovered/Not Resolved]
